FAERS Safety Report 6800667-4 (Version None)
Quarter: 2010Q2

REPORT INFORMATION
  Report Type: 
  Country: None (occurrence: None)
  Receive Date: 20100629
  Receipt Date: 20100614
  Transmission Date: 20101027
  Serious: Yes (Other)
  Sender: FDA-Public Use
  Company Number: FR-BAYER-201029498GPV

PATIENT
  Age: 54 Year
  Sex: Male

DRUGS (1)
  1. SORAFENIB [Suspect]
     Indication: GASTROINTESTINAL STROMAL TUMOUR
     Dosage: TOTAL DAILY DOSE: 800 MG  UNIT DOSE: 200 MG
     Route: 048
     Dates: start: 20100501

REACTIONS (8)
  - ALOPECIA [None]
  - ARTHRALGIA [None]
  - BURNING SENSATION [None]
  - HYPOAESTHESIA [None]
  - MUSCLE CONTRACTIONS INVOLUNTARY [None]
  - MYALGIA [None]
  - PALMAR-PLANTAR ERYTHRODYSAESTHESIA SYNDROME [None]
  - SKIN BURNING SENSATION [None]
